FAERS Safety Report 8187240-3 (Version None)
Quarter: 2012Q1

REPORT INFORMATION
  Report Type: 
  Country: None (occurrence: None)
  Receive Date: 20120306
  Receipt Date: 20120301
  Transmission Date: 20120608
  Serious: Yes (Hospitalization, Other)
  Sender: FDA-Public Use
  Company Number: JP-BRACCO-005632

PATIENT
  Sex: Male
  Weight: 75 kg

DRUGS (6)
  1. JUVELA N [Concomitant]
  2. LIPITOR [Concomitant]
  3. IOPAMIDOL [Suspect]
     Indication: AORTIC ANEURYSM
  4. CONIEL [Concomitant]
  5. SITAGLIPTIN PHOSPHATE [Concomitant]
  6. IOPAMIDOL [Suspect]
     Indication: COMPUTERISED TOMOGRAM
     Dosage: INFUSION RATE: 3ML/SEC FOR 33 SECS
     Route: 042
     Dates: start: 20120203, end: 20120203

REACTIONS (3)
  - AMNESIA [None]
  - BLOOD PRESSURE INCREASED [None]
  - CONTRAST MEDIA ALLERGY [None]
